FAERS Safety Report 8140651-4 (Version None)
Quarter: 2012Q1

REPORT INFORMATION
  Report Type: 
  Country: None (occurrence: None)
  Receive Date: 20120216
  Receipt Date: 20120206
  Transmission Date: 20120608
  Serious: Yes (Death, Life-Threatening, Hospitalization, Other)
  Sender: FDA-Public Use
  Company Number: GB-JNJFOC-20110608146

PATIENT
  Sex: Male
  Weight: 73 kg

DRUGS (1)
  1. REMICADE [Suspect]
     Indication: RHEUMATOID ARTHRITIS
     Route: 042
     Dates: start: 20050810, end: 20051123

REACTIONS (8)
  - BASAL CELL CARCINOMA [None]
  - SKIN INFECTION [None]
  - CARDIAC FAILURE CONGESTIVE [None]
  - ABDOMINAL SEPSIS [None]
  - URINARY TRACT INFECTION [None]
  - RENAL FAILURE ACUTE [None]
  - CARDIOGENIC SHOCK [None]
  - LOWER RESPIRATORY TRACT INFECTION [None]
